FAERS Safety Report 5691501-7 (Version None)
Quarter: 2008Q1

REPORT INFORMATION
  Report Type: 
  Country: None (occurrence: None)
  Receive Date: 20080331
  Receipt Date: 20080317
  Transmission Date: 20080703
  Serious: Yes (Other)
  Sender: FDA-Public Use
  Company Number: 2008-01942

PATIENT
  Age: 45 Year
  Sex: Male

DRUGS (6)
  1. ACETAMINOPHEN AND HYDROCODONE BITARTRATE [Suspect]
     Indication: PAIN IN EXTREMITY
     Dosage: 1 TABLET, TID, ORAL
     Route: 048
     Dates: start: 20010101
  2. CARISOPRODOL [Suspect]
     Indication: BACK PAIN
     Dosage: 1 TABLET, TID, ORAL
     Route: 048
     Dates: start: 20000101, end: 20080101
  3. AMBIEN [Suspect]
     Indication: INSOMNIA
     Dosage: 1 TABLET, QHS, ORAL
     Route: 048
     Dates: start: 20010601, end: 20030101
  4. MS CONTIN [Concomitant]
  5. FLEXERIL [Concomitant]
  6. OXYCONTIN [Concomitant]

REACTIONS (4)
  - ABNORMAL BEHAVIOUR [None]
  - AMNESIA [None]
  - IMPRISONMENT [None]
  - SOMNAMBULISM [None]
